FAERS Safety Report 15527313 (Version 2)
Quarter: 2018Q4

REPORT INFORMATION
  Report Type: Report from Study
  Country: US (occurrence: US)
  Receive Date: 20181018
  Receipt Date: 20181116
  Transmission Date: 20190205
  Serious: Yes (Hospitalization, Other)
  Sender: FDA-Public Use
  Company Number: US-ADAMAS PHARMA, LLC-2018ADA00821

PATIENT
  Sex: Female
  Weight: 73.92 kg

DRUGS (30)
  1. RYTARY [Suspect]
     Active Substance: CARBIDOPA\LEVODOPA
     Dosage: 4 CAPSULES, 1X/DAY AT 8:00AM
  2. IBUPROFEN. [Concomitant]
     Active Substance: IBUPROFEN
     Dosage: 800 MG, 3X/DAY AS NEEDED
     Route: 048
     Dates: end: 2018
  3. HYZAAR [Concomitant]
     Active Substance: HYDROCHLOROTHIAZIDE\LOSARTAN POTASSIUM
  4. LACTOBACILLUS ACIDOPHILUS\LACTOBACILLUS BULGARICUS [Concomitant]
     Active Substance: LACTOBACILLUS ACIDOPHILUS\LACTOBACILLUS DELBRUECKII SUBSP. BULGARICUS
     Dosage: 1 DOSAGE UNITS, 3X/DAY
  5. LORAZEPAM. [Concomitant]
     Active Substance: LORAZEPAM
     Dosage: 1 MG, 3X/DAY AS NEEDED
     Route: 048
  6. CYMBALTA [Concomitant]
     Active Substance: DULOXETINE HYDROCHLORIDE
     Dosage: 60 MG, 1X/DAY EVERY EVENING
  7. LISINOPRIL. [Concomitant]
     Active Substance: LISINOPRIL
  8. LISINOPRIL. [Concomitant]
     Active Substance: LISINOPRIL
     Dosage: 5 MG, 1X/DAY
     Route: 048
  9. NORCO [Concomitant]
     Active Substance: ACETAMINOPHEN\HYDROCODONE BITARTRATE
     Dosage: 1 DOSAGE UNITS, EVERY 6 HOURS AS NEEDED
  10. ZANTAC [Concomitant]
     Active Substance: RANITIDINE HYDROCHLORIDE
     Dosage: 150 MG, 2X/DAY
  11. GOCOVRI [Suspect]
     Active Substance: AMANTADINE
     Dosage: 274 MG, 1X/DAY AT NIGHT
     Route: 048
  12. FLONASE ALLERGY RELIEF [Concomitant]
     Active Substance: FLUTICASONE PROPIONATE
     Dosage: 2 ACTUATIONS, 1X/DAY AS NEEDED
  13. PROAIR HFA [Concomitant]
     Active Substance: ALBUTEROL SULFATE
     Dosage: 2 ACTUATIONS, 4X/DAY AS NEEDED
  14. MIRALAX [Concomitant]
     Active Substance: POLYETHYLENE GLYCOL 3350
     Dosage: 17 G, 2X/DAY
     Route: 048
  15. VITAMIN D [Concomitant]
     Active Substance: CHOLECALCIFEROL
     Dosage: 400 U, 1X/DAY
  16. GOCOVRI [Suspect]
     Active Substance: AMANTADINE
     Indication: DYSKINESIA
     Dosage: 274 MG, 1X/DAYAT BEDTIME
     Dates: start: 20171130
  17. GOCOVRI [Suspect]
     Active Substance: AMANTADINE
     Dosage: 137 MG, 1X/DAY AT NIGHT
     Route: 048
     Dates: start: 20171205, end: 20171211
  18. VOLTAREN [Concomitant]
     Active Substance: DICLOFENAC SODIUM
     Dosage: 2 G, 4X/DAY AS NEEDED
     Route: 061
  19. CYMBALTA [Concomitant]
     Active Substance: DULOXETINE HYDROCHLORIDE
     Dosage: 30 MG, 1X/DAY EVERY MORNING
     Route: 048
  20. TYLENOL [Concomitant]
     Active Substance: ACETAMINOPHEN
     Dosage: 500 MG, AS NEEDED BID
     Route: 048
  21. XYZAL [Concomitant]
     Active Substance: LEVOCETIRIZINE DIHYDROCHLORIDE
     Dosage: 5 MG, 1X/DAY AT BEDTIME
     Route: 048
  22. FIBERCON [Concomitant]
     Active Substance: CALCIUM POLYCARBOPHIL
  23. RYTARY [Suspect]
     Active Substance: CARBIDOPA\LEVODOPA
     Dosage: 3 CAPSULES, 2X/DAY AT 12:00PM, 4:00PM AND 8:00PM
  24. REQUIP XL [Concomitant]
     Active Substance: ROPINIROLE HYDROCHLORIDE
     Dosage: 4 MG, 1X/DAY AT BEDTIME
     Route: 048
  25. DULCOLAX NOS [Concomitant]
     Active Substance: BISACODYL OR DOCUSATE SODIUM
     Dosage: 10 MG, AS NEEDED
  26. GOCOVRI [Suspect]
     Active Substance: AMANTADINE
     Dosage: 274 MG, 1X/DAY AT NIGHT
     Route: 048
     Dates: start: 20171212
  27. RYTARY [Suspect]
     Active Substance: CARBIDOPA\LEVODOPA
  28. PROTONIX [Concomitant]
     Active Substance: PANTOPRAZOLE SODIUM
     Dosage: 40 MG, 1X/DAY
     Route: 048
  29. LIPITOR [Concomitant]
     Active Substance: ATORVASTATIN CALCIUM
     Dosage: 20 MG, 1X/DAY AT BEDTIME
     Route: 048
  30. NUPLAZID [Concomitant]
     Active Substance: PIMAVANSERIN TARTRATE

REACTIONS (18)
  - Cognitive disorder [Not Recovered/Not Resolved]
  - Small intestinal obstruction [Recovered/Resolved]
  - Duodenitis [Recovered/Resolved]
  - Hyperlipidaemia [Unknown]
  - Product dose omission [Recovered/Resolved]
  - Pharyngitis streptococcal [Unknown]
  - Urinary tract infection [Unknown]
  - Hypertension [Unknown]
  - Hallucination [Recovering/Resolving]
  - Dyspnoea [Unknown]
  - Sleep talking [Recovering/Resolving]
  - Hernia [Recovering/Resolving]
  - Oedema peripheral [Recovering/Resolving]
  - Oesophagitis [Recovering/Resolving]
  - Gastritis [Recovered/Resolved]
  - Asthenia [Recovering/Resolving]
  - Nightmare [Recovering/Resolving]
  - Flat affect [Recovering/Resolving]

NARRATIVE: CASE EVENT DATE: 2018
